FAERS Safety Report 16724627 (Version 6)
Quarter: 2019Q4

REPORT INFORMATION
  Report Type: Spontaneous
  Country: US (occurrence: US)
  Receive Date: 20190821
  Receipt Date: 20191128
  Transmission Date: 20200122
  Serious: Yes (Other)
  Sender: FDA-Public Use
  Company Number: US-PFIZER INC-2019337046

PATIENT
  Age: 52 Year
  Sex: Male

DRUGS (2)
  1. LYRICA [Suspect]
     Active Substance: PREGABALIN
     Dosage: 25 MG, 4X/DAY
     Route: 048
     Dates: start: 20190731
  2. LYRICA [Suspect]
     Active Substance: PREGABALIN
     Indication: PAIN
     Dosage: UNK, 3X/DAY

REACTIONS (5)
  - Ear neoplasm [Unknown]
  - Somnolence [Unknown]
  - Drug hypersensitivity [Unknown]
  - Fatigue [Unknown]
  - Hypoacusis [Unknown]
